FAERS Safety Report 10149630 (Version 3)
Quarter: 2014Q2

REPORT INFORMATION
  Report Type: Spontaneous
  Country: US (occurrence: US)
  Receive Date: 20140502
  Receipt Date: 20140523
  Transmission Date: 20141212
  Serious: No
  Sender: FDA-Public Use
  Company Number: US-PFIZER INC-2014119700

PATIENT
  Age: 83 Year
  Sex: Male

DRUGS (1)
  1. DEPO MEDROL [Suspect]
     Indication: ARTHRALGIA
     Dosage: UNK
     Dates: start: 2014

REACTIONS (1)
  - Drug effect incomplete [Unknown]
